FAERS Safety Report 8363655-5 (Version None)
Quarter: 2012Q2

REPORT INFORMATION
  Report Type: 
  Country: None (occurrence: None)
  Receive Date: 20120516
  Receipt Date: 20120510
  Transmission Date: 20120825
  Serious: Yes (Other)
  Sender: FDA-Public Use
  Company Number: SE-JNJFOC-20120511218

PATIENT
  Sex: Male

DRUGS (2)
  1. ROGAINE [Suspect]
     Route: 061
  2. ROGAINE [Suspect]
     Indication: ALOPECIA
     Route: 061
     Dates: start: 20110101

REACTIONS (2)
  - HEART VALVE INCOMPETENCE [None]
  - DRUG INEFFECTIVE [None]
